FAERS Safety Report 10486677 (Version 4)
Quarter: 2015Q1

REPORT INFORMATION
  Report Type: Spontaneous
  Country: US (occurrence: US)
  Receive Date: 20141001
  Receipt Date: 20150114
  Transmission Date: 20150720
  Serious: Yes (Other)
  Sender: FDA-Public Use
  Company Number: US-JNJFOC-20140924860

PATIENT
  Age: 44 Year
  Sex: Female
  Weight: 107.5 kg

DRUGS (1)
  1. XARELTO [Suspect]
     Active Substance: RIVAROXABAN
     Indication: PRODUCT USED FOR UNKNOWN INDICATION
     Route: 048

REACTIONS (8)
  - Visual acuity reduced [Unknown]
  - Pulmonary embolism [Unknown]
  - Thyroid disorder [Unknown]
  - Anaemia [Unknown]
  - Amnesia [Unknown]
  - Rash [Unknown]
  - Goitre [Unknown]
  - Menorrhagia [Unknown]

NARRATIVE: CASE EVENT DATE: 201409
